FAERS Safety Report 5805279-7 (Version None)
Quarter: 2008Q3

REPORT INFORMATION
  Report Type: 
  Country: None (occurrence: None)
  Receive Date: 20080703
  Receipt Date: 20080619
  Transmission Date: 20090109
  Serious: Yes (Hospitalization)
  Sender: FDA-Public Use
  Company Number: 2008BI010908

PATIENT
  Age: 51 Year
  Sex: Female

DRUGS (1)
  1. AVONEX [Suspect]
     Indication: MULTIPLE SCLEROSIS
     Dosage: 30 UG;QW;IM
     Route: 030
     Dates: start: 20010401

REACTIONS (8)
  - ABDOMINAL PAIN UPPER [None]
  - ADENOMYOSIS [None]
  - CERVICITIS [None]
  - IMMUNOSUPPRESSION [None]
  - LEIOMYOMA [None]
  - OVARIAN CYST [None]
  - PNEUMONIA [None]
  - UTERINE POLYP [None]
